FAERS Safety Report 22380542 (Version 1)
Quarter: 2023Q2

REPORT INFORMATION
  Report Type: Report from Study
  Country: US (occurrence: US)
  Receive Date: 20230529
  Receipt Date: 20230529
  Transmission Date: 20230721
  Serious: Yes (Hospitalization, Other)
  Sender: FDA-Public Use
  Company Number: US-HORIZON THERAPEUTICS-HZN-2023-002490

PATIENT

DRUGS (37)
  1. KRYSTEXXA [Suspect]
     Active Substance: PEGLOTICASE
     Indication: Gout
     Dosage: FIRST INFUSION
     Route: 042
     Dates: start: 20230215
  2. KRYSTEXXA [Suspect]
     Active Substance: PEGLOTICASE
     Dosage: 2ND INFUSION UNK
     Route: 042
     Dates: start: 2023
  3. KRYSTEXXA [Suspect]
     Active Substance: PEGLOTICASE
     Dosage: UNKNOWN (INFUSION)
     Route: 042
     Dates: start: 20230412
  4. KRYSTEXXA [Suspect]
     Active Substance: PEGLOTICASE
     Dosage: UNKNOWN (INFUSION)
     Route: 042
     Dates: start: 20230510
  5. UNSPECIFIED INGREDIENT [Suspect]
     Active Substance: UNSPECIFIED INGREDIENT
     Indication: Product used for unknown indication
     Dosage: UNK
     Route: 065
     Dates: start: 2023
  6. METHOTREXATE [Suspect]
     Active Substance: METHOTREXATE
     Indication: Immunosuppression
     Dosage: 2.5 MG, WEEKLY (6 TABLETS)
     Route: 048
     Dates: start: 2023
  7. METHOTREXATE [Suspect]
     Active Substance: METHOTREXATE
     Dosage: 7.5 3 (PILLS), WEEKLY
     Route: 048
     Dates: start: 2023
  8. CELLCEPT [Concomitant]
     Active Substance: MYCOPHENOLATE MOFETIL
     Indication: Immunosuppression
     Dosage: 750 MG, BID
     Route: 048
     Dates: start: 2023, end: 20230309
  9. METOLAZONE [Concomitant]
     Active Substance: METOLAZONE
     Dosage: 5 MG M,N,F
     Dates: start: 20230403
  10. ALLOPURINOL [Concomitant]
     Active Substance: ALLOPURINOL
     Dosage: 300 MG,1 TABLET BY MOUTH EVERY DAY
     Route: 048
  11. ATENOLOL [Concomitant]
     Active Substance: ATENOLOL
     Dosage: 50 MG, 1 TABLET BY MOUTH TWICE A DAY
     Route: 048
  12. GLIMEPIRIDE [Concomitant]
     Active Substance: GLIMEPIRIDE
     Dosage: 2 MG, 1 TABLET BY MOUTH EVERY DAY
     Route: 048
  13. KLOR-CON [Concomitant]
     Active Substance: POTASSIUM CHLORIDE
     Dosage: 20 MEQ 1 TABLET BY MOUTH EVERY DAY
     Route: 048
  14. NATEGLINIDE [Concomitant]
     Active Substance: NATEGLINIDE
     Dosage: 120 MG, 1 TABLET BY MOUTH THREE TIMES A DAY
     Route: 048
  15. RAMIPRIL [Concomitant]
     Active Substance: RAMIPRIL
     Dosage: 5 MG, 1 TABLET BY MOUTH EVERY DAY
     Route: 048
  16. TORSEMIDE [Concomitant]
     Active Substance: TORSEMIDE
     Dosage: 20 MG, 1 TABLET BY MOUTH EVERY DAY
     Route: 048
  17. TORSEMIDE [Concomitant]
     Active Substance: TORSEMIDE
     Dosage: 20 MG, 2 TABLET BY MOUTH BID
     Route: 048
     Dates: start: 2023
  18. WARFARIN SODIUM [Concomitant]
     Active Substance: WARFARIN SODIUM
     Dosage: 5 MG 1 TABLET BY MOUTH EVERY DAY
     Route: 048
  19. MELOXICAM [Concomitant]
     Active Substance: MELOXICAM
     Dosage: 15 MG, QD
     Route: 048
     Dates: start: 2023
  20. SIMVASTATIN [Concomitant]
     Active Substance: SIMVASTATIN
     Dosage: 20 MG, QD
     Dates: start: 2023
  21. PREDNISONE [Concomitant]
     Active Substance: PREDNISONE
     Dosage: 40 MG, QD
     Route: 048
     Dates: start: 202303
  22. PREDNISONE [Concomitant]
     Active Substance: PREDNISONE
     Dosage: 60 MG (3 TABLETS), QD
     Route: 048
     Dates: start: 202303
  23. PREDNISONE [Concomitant]
     Active Substance: PREDNISONE
     Dosage: 35 MG, QD
     Route: 048
     Dates: start: 202303
  24. PREDNISONE [Concomitant]
     Active Substance: PREDNISONE
     Dosage: 30 MG, QD
     Route: 048
     Dates: start: 202303
  25. PREDNISONE [Concomitant]
     Active Substance: PREDNISONE
     Dosage: 25 MG, QD
     Route: 048
     Dates: start: 202303
  26. PREDNISONE [Concomitant]
     Active Substance: PREDNISONE
     Dosage: 20 MG, QD
     Route: 048
     Dates: start: 202303
  27. PREDNISONE [Concomitant]
     Active Substance: PREDNISONE
     Dosage: 15 MG, QD
     Route: 048
     Dates: start: 202303
  28. PREDNISONE [Concomitant]
     Active Substance: PREDNISONE
     Dosage: 10 MG, QD
     Route: 048
     Dates: start: 202303
  29. PREDNISONE [Concomitant]
     Active Substance: PREDNISONE
     Dosage: 5 MG, QD
     Route: 048
     Dates: start: 202303
  30. ATORVASTATIN [Concomitant]
     Active Substance: ATORVASTATIN
     Dosage: 10 MG TABLET, 1 TABLET, ORAL, QD.
     Route: 048
  31. SODIUM CHLORIDE [Concomitant]
     Active Substance: SODIUM CHLORIDE
     Dosage: 1000 ML INTRAVENOUS 100 ML/HR
     Route: 042
     Dates: start: 202303
  32. ACETAMINOPHEN [Concomitant]
     Active Substance: ACETAMINOPHEN
     Dosage: 650 MG 2 TABLETS, ORAL , Q4H
     Route: 048
     Dates: start: 202303
  33. ACETAMINOPHEN\OXYCODONE HYDROCHLORIDE [Concomitant]
     Active Substance: ACETAMINOPHEN\OXYCODONE HYDROCHLORIDE
     Dosage: 5 MG TABLET 2 TABLETS, ORAL, Q4H.
     Route: 048
  34. MELATONIN [Concomitant]
     Active Substance: MELATONIN
     Dosage: 3 MG TABLET 1 TABLETS, ORAL, QHS
     Route: 048
     Dates: start: 202303
  35. MORPHINE [Concomitant]
     Active Substance: MORPHINE
     Dosage: 4 MG/ML 1 ML INJECTION, 4 MG 1 ML INTRAVENOUS PLUSH, Q3H
     Route: 042
     Dates: start: 202303
  36. ONDANSETRON [Concomitant]
     Active Substance: ONDANSETRON
     Dosage: 2 MG/ 1ML 2ML INJECTION - 4 MG (2ML), INTRAVENOUS PUSH, Q4H
     Route: 042
     Dates: start: 202303
  37. POLYETHYLENE GLYCOL 3350 [Concomitant]
     Active Substance: POLYETHYLENE GLYCOL 3350
     Dosage: UD PACKET 17 GRAMS 15 ML, ORAL QD
     Route: 048
     Dates: start: 202303

REACTIONS (13)
  - Blood glucose increased [Unknown]
  - Arthropathy [Recovering/Resolving]
  - Acute kidney injury [Unknown]
  - Peripheral swelling [Recovering/Resolving]
  - Joint swelling [Recovering/Resolving]
  - Arthralgia [Recovering/Resolving]
  - Condition aggravated [Unknown]
  - Anion gap abnormal [Recovered/Resolved]
  - Off label use [Unknown]
  - Gout [Unknown]
  - Pain in extremity [Recovering/Resolving]
  - Gait disturbance [Unknown]
  - Hypokinesia [Unknown]

NARRATIVE: CASE EVENT DATE: 20230101
